FAERS Safety Report 20434710 (Version 4)
Quarter: 2022Q2

REPORT INFORMATION
  Report Type: Spontaneous
  Country: TH (occurrence: TH)
  Receive Date: 20220206
  Receipt Date: 20220530
  Transmission Date: 20220721
  Serious: Yes (Other)
  Sender: FDA-Public Use
  Company Number: TH-NOVARTISPH-NVSC2022TH018830

PATIENT
  Age: 80 Year
  Sex: Female

DRUGS (32)
  1. ENTRESTO [Suspect]
     Active Substance: SACUBITRIL\VALSARTAN
     Indication: Cardiac failure
     Dosage: 0.25 DOSAGE FORM, BID (100) AFTER MEAL
     Route: 065
     Dates: start: 202007
  2. ENTRESTO [Suspect]
     Active Substance: SACUBITRIL\VALSARTAN
     Dosage: 0.25 DOSAGE FORM, BID (100) AFTER MEAL
     Route: 065
  3. ENTRESTO [Suspect]
     Active Substance: SACUBITRIL\VALSARTAN
     Dosage: 100 MG
     Route: 065
     Dates: start: 202012
  4. ENTRESTO [Suspect]
     Active Substance: SACUBITRIL\VALSARTAN
     Dosage: 0.5 DOSAGE FORM, BID (100 MG) AFTER MEAL
     Route: 065
     Dates: start: 202103
  5. ENTRESTO [Suspect]
     Active Substance: SACUBITRIL\VALSARTAN
     Dosage: 0.5 DOSAGE FORM, BID (100 MG) AFTER MEAL
     Route: 065
     Dates: start: 202111
  6. ENTRESTO [Suspect]
     Active Substance: SACUBITRIL\VALSARTAN
     Dosage: 0.5 DOSAGE FORM, BID (100) AFTER MEAL
     Route: 065
     Dates: start: 202112
  7. BISOPROLOL [Concomitant]
     Active Substance: BISOPROLOL
     Indication: Product used for unknown indication
     Dosage: 2.5 MG, QD
     Route: 065
     Dates: start: 202007
  8. BISOPROLOL [Concomitant]
     Active Substance: BISOPROLOL
     Dosage: 2.5 MG, QD
     Route: 065
     Dates: start: 202012
  9. BISOPROLOL [Concomitant]
     Active Substance: BISOPROLOL
     Dosage: 2.5 MG, QD
     Route: 065
     Dates: start: 202103
  10. BISOPROLOL [Concomitant]
     Active Substance: BISOPROLOL
     Dosage: 2.5 MG, QD
     Route: 065
     Dates: start: 202111
  11. BISOPROLOL [Concomitant]
     Active Substance: BISOPROLOL
     Dosage: 2.5 MG, QD
     Route: 065
  12. BISOPROLOL [Concomitant]
     Active Substance: BISOPROLOL
     Dosage: 2.5 MG, QD
     Route: 065
     Dates: start: 202205
  13. FUROSEMIDE [Concomitant]
     Active Substance: FUROSEMIDE
     Indication: Product used for unknown indication
     Dosage: 80 MG, QD (40-80 MG)
     Route: 065
     Dates: start: 202007
  14. FUROSEMIDE [Concomitant]
     Active Substance: FUROSEMIDE
     Dosage: 40 MG, PRN (20-40 MG)
     Route: 065
     Dates: start: 202012
  15. FUROSEMIDE [Concomitant]
     Active Substance: FUROSEMIDE
     Dosage: UNK UNK, PRN
     Route: 065
     Dates: start: 202103
  16. FUROSEMIDE [Concomitant]
     Active Substance: FUROSEMIDE
     Dosage: UNK UNK, PRN
     Route: 065
     Dates: start: 202111
  17. FUROSEMIDE [Concomitant]
     Active Substance: FUROSEMIDE
     Dosage: UNK UNK, PRN
     Route: 065
  18. FUROSEMIDE [Concomitant]
     Active Substance: FUROSEMIDE
     Dosage: UNK UNK, PRN
     Route: 065
     Dates: start: 202205
  19. ATORVASTATIN [Concomitant]
     Active Substance: ATORVASTATIN
     Indication: Product used for unknown indication
     Dosage: 0.5 MG, QD (AFTER MEAL)
     Route: 065
  20. IVABRADINE [Concomitant]
     Active Substance: IVABRADINE
     Indication: Product used for unknown indication
     Dosage: 5 MG, QD
     Route: 065
     Dates: start: 202007
  21. IVABRADINE [Concomitant]
     Active Substance: IVABRADINE
     Dosage: 5 MG, QD
     Route: 065
     Dates: start: 202012
  22. IVABRADINE [Concomitant]
     Active Substance: IVABRADINE
     Dosage: 5 MG, QD
     Route: 065
     Dates: start: 202103
  23. IVABRADINE [Concomitant]
     Active Substance: IVABRADINE
     Dosage: 5 MG, QD
     Route: 065
     Dates: start: 202111
  24. IVABRADINE [Concomitant]
     Active Substance: IVABRADINE
     Dosage: 5 MG, QD
     Route: 065
  25. IVABRADINE [Concomitant]
     Active Substance: IVABRADINE
     Dosage: 5 MG, QD
     Route: 065
     Dates: start: 202205
  26. SPIRONOLACTONE [Concomitant]
     Active Substance: SPIRONOLACTONE
     Indication: Product used for unknown indication
     Dosage: 12.5 MG, QD
     Route: 065
     Dates: start: 202007
  27. SPIRONOLACTONE [Concomitant]
     Active Substance: SPIRONOLACTONE
     Dosage: 12.5 MG, QD
     Route: 065
     Dates: start: 202012
  28. SPIRONOLACTONE [Concomitant]
     Active Substance: SPIRONOLACTONE
     Dosage: 12.5 MG, QD
     Route: 065
     Dates: start: 202103
  29. SPIRONOLACTONE [Concomitant]
     Active Substance: SPIRONOLACTONE
     Dosage: 12.5 MG, QD
     Route: 065
     Dates: start: 202111
  30. SPIRONOLACTONE [Concomitant]
     Active Substance: SPIRONOLACTONE
     Dosage: 12.5 MG, QD
     Route: 065
  31. SPIRONOLACTONE [Concomitant]
     Active Substance: SPIRONOLACTONE
     Dosage: 12.5 MG, QD
     Route: 065
     Dates: start: 202205
  32. CLOPIDOGREL [Concomitant]
     Active Substance: CLOPIDOGREL BISULFATE
     Indication: Product used for unknown indication
     Dosage: 75 MG, QD (AFTER MEAL)
     Route: 065

REACTIONS (6)
  - Mitral valve incompetence [Unknown]
  - Tricuspid valve incompetence [Unknown]
  - Hypotension [Unknown]
  - Glomerular filtration rate decreased [Unknown]
  - Incorrect dose administered [Unknown]
  - Wrong technique in product usage process [Unknown]
